FAERS Safety Report 14453577 (Version 1)
Quarter: 2018Q1

REPORT INFORMATION
  Report Type: Spontaneous
  Country: US (occurrence: US)
  Receive Date: 20180129
  Receipt Date: 20180129
  Transmission Date: 20180509
  Serious: Yes (Other)
  Sender: FDA-Public Use
  Company Number: PHEH2018US002459

PATIENT
  Sex: Female
  Weight: 68.93 kg

DRUGS (14)
  1. CYTOMEL [Concomitant]
     Active Substance: LIOTHYRONINE SODIUM
     Indication: THYROID DISORDER
     Dosage: 25 MG, QD
     Route: 048
  2. AMPHETAMINE [Suspect]
     Active Substance: AMPHETAMINE
     Indication: CHRONIC FATIGUE SYNDROME
     Dosage: 1 DF, BID (ONE TABLET IN THE MORNING AND ONE IN THE AFTERNOON)
     Route: 048
     Dates: start: 2001
  3. SYNTHROID [Concomitant]
     Active Substance: LEVOTHYROXINE SODIUM
     Indication: THYROID DISORDER
     Dosage: 150 UG, QD (SINCE THE PATIENT WAS 25 YEARS OLD)
     Route: 048
  4. PHENTERMINE HYDROCHLORIDE CAPSULES USP [Suspect]
     Active Substance: PHENTERMINE HYDROCHLORIDE
     Indication: CHRONIC FATIGUE SYNDROME
     Dosage: 1 DF, BID (IN THE MORNING AND IN THE EVENING)
     Route: 048
     Dates: start: 2001
  5. SOMA [Concomitant]
     Active Substance: CARISOPRODOL
     Indication: SLEEP DISORDER
     Dosage: 350 MG, PRN (AT NIGHT AS NEEDED)
     Route: 048
     Dates: start: 2001
  6. LEVOTHYROXINE. [Suspect]
     Active Substance: LEVOTHYROXINE
     Indication: THYROID DISORDER
     Dosage: UNK
     Route: 065
  7. OMEPRAZOLE DELAYED RELEASE CAPSULES [Suspect]
     Active Substance: OMEPRAZOLE
     Indication: GASTROOESOPHAGEAL REFLUX DISEASE
     Dosage: UNK
     Route: 065
  8. TRIAMTERENE AND HYDROCHLOROTHIAZIDE [Suspect]
     Active Substance: HYDROCHLOROTHIAZIDE\TRIAMTERENE
     Indication: BLOOD PRESSURE ABNORMAL
     Dosage: UNK
     Route: 065
     Dates: start: 2001
  9. HYDROCODONE [Suspect]
     Active Substance: HYDROCODONE
     Indication: PAIN
     Dosage: UNK
     Route: 048
  10. FUROSEMIDE TABLETS USP [Suspect]
     Active Substance: FUROSEMIDE
     Indication: BLOOD PRESSURE ABNORMAL
     Dosage: 1 DF, QD
     Route: 048
     Dates: start: 2001
  11. AMPHETAMINE [Suspect]
     Active Substance: AMPHETAMINE
     Indication: THINKING ABNORMAL
  12. PHENTERMINE HYDROCHLORIDE CAPSULES USP [Suspect]
     Active Substance: PHENTERMINE HYDROCHLORIDE
     Indication: THINKING ABNORMAL
  13. PRILOSEC [Suspect]
     Active Substance: OMEPRAZOLE MAGNESIUM
     Indication: GASTROOESOPHAGEAL REFLUX DISEASE
     Dosage: UNK
     Route: 065
  14. SOMA [Concomitant]
     Active Substance: CARISOPRODOL
     Indication: MUSCLE SPASMS

REACTIONS (9)
  - Gout [Recovered/Resolved]
  - Feeling abnormal [Unknown]
  - Weight decreased [Unknown]
  - Pain [Unknown]
  - Blood pressure decreased [Unknown]
  - Throat tightness [Unknown]
  - Gastrooesophageal reflux disease [Unknown]
  - Lyme disease [Unknown]
  - Product use in unapproved indication [Unknown]
